FAERS Safety Report 10665345 (Version 1)
Quarter: 2014Q4

REPORT INFORMATION
  Report Type: Spontaneous
  Country: RU (occurrence: RU)
  Receive Date: 20141219
  Receipt Date: 20141219
  Transmission Date: 20150529
  Serious: Yes (Other)
  Sender: FDA-Public Use
  Company Number: RU-ABBVIE-14P-251-1323737-00

PATIENT
  Age: 4 Year
  Sex: Female
  Weight: 16 kg

DRUGS (1)
  1. KLACID 125 MG/5 ML SUSP [Suspect]
     Active Substance: CLARITHROMYCIN
     Indication: TRACHEITIS
     Dosage: DAILY DOSE: 10 ML; FORM STRENGTH: 125 MG/5 ML
     Route: 048
     Dates: start: 201411, end: 201411

REACTIONS (1)
  - Pneumonia [Recovered/Resolved]

NARRATIVE: CASE EVENT DATE: 201411
